FAERS Safety Report 12070622 (Version 4)
Quarter: 2016Q2

REPORT INFORMATION
  Report Type: Spontaneous
  Country: US (occurrence: US)
  Receive Date: 20160211
  Receipt Date: 20160517
  Transmission Date: 20160815
  Serious: No
  Sender: FDA-Public Use
  Company Number: US-PFIZER INC-2016078953

PATIENT
  Age: 70 Year
  Sex: Male
  Weight: 106 kg

DRUGS (25)
  1. ACCOLATE [Concomitant]
     Active Substance: ZAFIRLUKAST
     Dosage: 20 MG, 2X/DAY
  2. ZAFIRLUKAST. [Concomitant]
     Active Substance: ZAFIRLUKAST
     Dosage: 20 MG, 2X/DAY (TAKE 1 TABLET TWICE DAILY)
     Route: 048
  3. FLUTICASONE PROPIONATE. [Concomitant]
     Active Substance: FLUTICASONE PROPIONATE
     Dosage: UNK, 1X/DAY (50 MCG/ACT NASAL SUSPENSION)
  4. ACETAMINOPHEN\HYDROCODONE BITARTRATE [Concomitant]
     Active Substance: ACETAMINOPHEN\HYDROCODONE BITARTRATE
     Indication: ANKYLOSING SPONDYLITIS
     Dosage: UNK (HYDROCODONE BITARTRATE, PARACETAMOL 7.5-3.25 MG) (TAKE 1 TABLET EVERY 6 HOURS)
     Route: 048
  5. NOVOLIN N RELION [Concomitant]
     Indication: DIABETIC NEUROPATHY
  6. LYRICA [Suspect]
     Active Substance: PREGABALIN
     Indication: FIBROMYALGIA
  7. ENALAPRIL MALEATE. [Concomitant]
     Active Substance: ENALAPRIL MALEATE
     Indication: HYPERTENSION
     Dosage: 10 MG, DAILY
     Route: 048
  8. METFORMIN HCL [Concomitant]
     Active Substance: METFORMIN HYDROCHLORIDE
     Indication: TYPE 2 DIABETES MELLITUS
     Dosage: 1000 MG, 2X/DAY
     Route: 048
  9. METFORMIN HCL [Concomitant]
     Active Substance: METFORMIN HYDROCHLORIDE
     Indication: DIABETIC NEUROPATHY
  10. CELEBREX [Suspect]
     Active Substance: CELECOXIB
     Indication: FIBROMYALGIA
  11. HUMALOG [Concomitant]
     Active Substance: INSULIN LISPRO
     Indication: TYPE 2 DIABETES MELLITUS
     Dosage: (100 UNITS/ML) 10 UNITS 2X/DAY (BEFORE BREAKFAST AND DINNER)
     Route: 058
  12. AMITRIPTYLINE HCL [Concomitant]
     Active Substance: AMITRIPTYLINE
     Indication: DEPRESSION
     Dosage: 50 MG, UNK, ONE AT BEDTIME
     Route: 048
  13. ATORVASTATIN CALCIUM. [Concomitant]
     Active Substance: ATORVASTATIN CALCIUM
     Indication: HYPERLIPIDAEMIA
     Dosage: 40 MG, DAILY
     Route: 048
  14. ZYRTEC [Concomitant]
     Active Substance: CETIRIZINE HYDROCHLORIDE
     Dosage: 10 MG, AS NEEDED (: TAKE ONE TABLET DAILY )
     Route: 048
  15. AMITRIPTYLINE HCL [Concomitant]
     Active Substance: AMITRIPTYLINE
     Indication: ANXIETY
  16. OMEPRAZOLE. [Concomitant]
     Active Substance: OMEPRAZOLE
     Indication: GASTROOESOPHAGEAL REFLUX DISEASE
     Dosage: 40 MG, 1X/DAY (TAKE 1 CAPSULE EVERY MORNING  BEFORE BREAKFAST)
     Route: 048
  17. TAMSULOSIN HCL [Concomitant]
     Active Substance: TAMSULOSIN
     Indication: BENIGN PROSTATIC HYPERPLASIA
     Dosage: (TAKE 1 CAPSULE AT BEDTIME)0.4 MG, 1X/DAY
     Route: 048
  18. LYRICA [Suspect]
     Active Substance: PREGABALIN
     Indication: NEUROPATHY PERIPHERAL
     Dosage: 150 MG, 1 IN MORNING AND 2 AT BED TIME (1 AM/  11 HS)
     Route: 048
  19. CELEBREX [Suspect]
     Active Substance: CELECOXIB
     Indication: ARTHRITIS
     Dosage: 200 MG, 2X/DAY
  20. CELEBREX [Suspect]
     Active Substance: CELECOXIB
     Indication: ANKYLOSING SPONDYLITIS
  21. MELATONIN [Concomitant]
     Active Substance: MELATONIN
     Dosage: 10 MG, UNK
     Route: 048
  22. AMITRIPTYLINE HCL [Concomitant]
     Active Substance: AMITRIPTYLINE
     Indication: FIBROMYALGIA
  23. CYMBALTA [Concomitant]
     Active Substance: DULOXETINE HYDROCHLORIDE
     Indication: FIBROMYALGIA
     Dosage: 60 MG, DAILY
     Route: 048
  24. HUMALOG [Concomitant]
     Active Substance: INSULIN LISPRO
     Indication: DIABETIC NEUROPATHY
  25. NOVOLIN N RELION [Concomitant]
     Indication: TYPE 2 DIABETES MELLITUS
     Dosage: 100UNIT/ML (30 IU, 2X/DAY)
     Route: 058

REACTIONS (4)
  - Paraesthesia [Not Recovered/Not Resolved]
  - Pruritus [Unknown]
  - Hypoaesthesia [Not Recovered/Not Resolved]
  - Anaemia [Not Recovered/Not Resolved]
